FAERS Safety Report 7131427-5 (Version None)
Quarter: 2010Q4

REPORT INFORMATION
  Report Type: 
  Country: None (occurrence: None)
  Receive Date: 20101124
  Receipt Date: 20101124
  Transmission Date: 20110411
  Serious: Yes (Death)
  Sender: FDA-Public Use
  Company Number: None

PATIENT
  Sex: Male
  Weight: 83.4619 kg

DRUGS (1)
  1. BEVACIZUMAB 15 MG/KG GENENTECH, INC. [Suspect]
     Indication: RENAL CELL CARCINOMA
     Dosage: 15 MG/KG EVERY 21 DAYS IV
     Route: 042
     Dates: start: 20081002, end: 20101112

REACTIONS (3)
  - AORTIC ANEURYSM RUPTURE [None]
  - MYOCARDIAL INFARCTION [None]
  - PULMONARY EMBOLISM [None]
